FAERS Safety Report 7853711-X (Version None)
Quarter: 2011Q4

REPORT INFORMATION
  Report Type: 
  Country: None (occurrence: None)
  Receive Date: 20111026
  Receipt Date: 20111021
  Transmission Date: 20120403
  Serious: Yes (Hospitalization, Other)
  Sender: FDA-Public Use
  Company Number: US-B.I. PHARMACEUTICALS,INC./RIDGEFIELD-2011-BP-21552BP

PATIENT
  Age: 79 Year
  Sex: Female

DRUGS (5)
  1. PRADAXA [Suspect]
     Indication: ATRIAL FIBRILLATION
     Dosage: 300 MG
     Route: 048
     Dates: start: 20110902, end: 20110906
  2. SYNTHROID [Concomitant]
     Indication: HYPOTHYROIDISM
     Dosage: 75 MG
     Route: 048
  3. ASPIRIN [Concomitant]
     Indication: PROPHYLAXIS
     Dosage: 325 MG
     Route: 048
  4. PRAVASTATIN [Concomitant]
     Indication: BLOOD CHOLESTEROL INCREASED
     Dosage: 40 MG
     Route: 048
  5. METOPROLOL TARTRATE [Concomitant]
     Indication: ATRIAL FIBRILLATION
     Dosage: 25 MG
     Route: 048

REACTIONS (6)
  - CEREBROVASCULAR ACCIDENT [None]
  - FATIGUE [None]
  - COUGH [None]
  - HEMIPARESIS [None]
  - CHEST PAIN [None]
  - CHEST DISCOMFORT [None]
